FAERS Safety Report 6877001-7 (Version None)
Quarter: 2010Q3

REPORT INFORMATION
  Report Type: 
  Country: None (occurrence: None)
  Receive Date: 20100727
  Receipt Date: 20100721
  Transmission Date: 20110219
  Serious: Yes (Death, Other)
  Sender: FDA-Public Use
  Company Number: US-ASTRAZENECA-2010SE34078

PATIENT
  Age: 15 Year
  Sex: Female

DRUGS (2)
  1. SEROQUEL [Suspect]
     Route: 048
  2. PROZAC [Concomitant]

REACTIONS (4)
  - COMPLETED SUICIDE [None]
  - INTENTIONAL SELF-INJURY [None]
  - ORGAN FAILURE [None]
  - SUICIDE ATTEMPT [None]
